FAERS Safety Report 21273772 (Version 1)
Quarter: 2022Q3

REPORT INFORMATION
  Report Type: Spontaneous
  Country: US (occurrence: US)
  Receive Date: 20220831
  Receipt Date: 20220831
  Transmission Date: 20221026
  Serious: No
  Sender: FDA-Public Use
  Company Number: US-PFIZER INC-202201099313

PATIENT
  Age: 49 Year
  Sex: Female

DRUGS (1)
  1. PAXLOVID [Suspect]
     Active Substance: NIRMATRELVIR\RITONAVIR
     Indication: COVID-19 treatment
     Dosage: UNK
     Dates: start: 20220807, end: 20220811

REACTIONS (11)
  - Disease recurrence [Unknown]
  - COVID-19 [Unknown]
  - Pain [Unknown]
  - Sinusitis [Unknown]
  - Cough [Unknown]
  - Oxygen consumption decreased [Unknown]
  - Pyrexia [Unknown]
  - Head discomfort [Unknown]
  - Eye inflammation [Unknown]
  - Eye pruritus [Unknown]
  - Tinnitus [Unknown]

NARRATIVE: CASE EVENT DATE: 20220822
